FAERS Safety Report 9448588 (Version 1)
Quarter: 2013Q3

REPORT INFORMATION
  Report Type: Spontaneous
  Country: US (occurrence: None)
  Receive Date: 20130808
  Receipt Date: 20130808
  Transmission Date: 20140515
  Serious: Yes (Hospitalization, Disabling)
  Sender: FDA-Public Use
  Company Number: None

PATIENT
  Age: 41 Year
  Sex: Female
  Weight: 84.82 kg

DRUGS (6)
  1. METHYLPREDNISOLONE [Suspect]
     Dosage: 1 INJECTION
     Dates: start: 20121210, end: 20121210
  2. EFFEXOR XR [Concomitant]
  3. SYMBICORT [Concomitant]
  4. OMEPRAZOLE [Concomitant]
  5. SINGULAIR [Concomitant]
  6. FLONASE [Concomitant]

REACTIONS (5)
  - Injection site nodule [None]
  - Injection site cyst [None]
  - Subcutaneous abscess [None]
  - Aspergillus test positive [None]
  - Suspected transmission of an infectious agent via product [None]
